FAERS Safety Report 9875905 (Version 1)
Quarter: 2014Q1

REPORT INFORMATION
  Report Type: Other
  Country: US (occurrence: US)
  Receive Date: 20140206
  Receipt Date: 20140206
  Transmission Date: 20141002
  Serious: No
  Sender: FDA-Public Use
  Company Number: US-ACORDA-ACO_36943_2013

PATIENT
  Age: 69 Year
  Sex: Female
  Weight: 90.7 kg

DRUGS (1)
  1. AMPYRA [Suspect]
     Indication: BALANCE DISORDER
     Dosage: 10 MG, BID
     Route: 048

REACTIONS (4)
  - Cough [Recovering/Resolving]
  - Laryngitis [Recovering/Resolving]
  - Throat irritation [Recovering/Resolving]
  - Oropharyngeal pain [Recovering/Resolving]
